FAERS Safety Report 6998926-8 (Version None)
Quarter: 2010Q3

REPORT INFORMATION
  Report Type: 
  Country: None (occurrence: None)
  Receive Date: 20100920
  Receipt Date: 20070802
  Transmission Date: 20110219
  Serious: Yes (Hospitalization, Other)
  Sender: FDA-Public Use
  Company Number: US-ASTRAZENECA-2006UW26450

PATIENT
  Age: 15319 Day
  Sex: Male
  Weight: 95.3 kg

DRUGS (9)
  1. SEROQUEL [Suspect]
     Indication: DEPRESSION
     Route: 048
     Dates: start: 20020201
  2. ZESTRIL [Concomitant]
     Route: 048
     Dates: start: 20020805
  3. PROTONIX [Concomitant]
     Dates: start: 20020805
  4. CLONIDINE [Concomitant]
     Dosage: 0.4 MG - 0.6 MG
     Route: 048
     Dates: start: 20060331
  5. COUMADIN [Concomitant]
     Route: 048
     Dates: start: 20060331
  6. HYDROCHLOROTHIAZIDE [Concomitant]
     Dates: start: 20020927
  7. ASPIRIN [Concomitant]
     Dosage: 325 ONCE A DAY
     Dates: start: 20020927
  8. XANAX [Concomitant]
     Dates: start: 20070202
  9. VICODIN [Concomitant]
     Dates: start: 20070202

REACTIONS (12)
  - BLOOD CHOLESTEROL INCREASED [None]
  - DIABETES MELLITUS INADEQUATE CONTROL [None]
  - DIABETIC COMA [None]
  - DIABETIC KETOACIDOSIS [None]
  - HYPERGLYCAEMIA [None]
  - HYPERTENSION [None]
  - OBESITY [None]
  - PANCREATITIS [None]
  - PANCREATITIS CHRONIC [None]
  - TARDIVE DYSKINESIA [None]
  - TYPE 1 DIABETES MELLITUS [None]
  - TYPE 2 DIABETES MELLITUS [None]
